FAERS Safety Report 17575750 (Version 1)
Quarter: 2020Q1

REPORT INFORMATION
  Report Type: Spontaneous
  Country: US (occurrence: US)
  Receive Date: 20200323
  Receipt Date: 20200323
  Transmission Date: 20200409
  Serious: Yes (Death, Hospitalization)
  Sender: FDA-Public Use
  Company Number: None

PATIENT
  Age: 66 Year
  Sex: Male
  Weight: 93 kg

DRUGS (2)
  1. VIDAZA [Concomitant]
     Active Substance: AZACITIDINE
  2. JADENU [Suspect]
     Active Substance: DEFERASIROX
     Indication: IRON OVERLOAD
     Route: 048

REACTIONS (2)
  - Blood bilirubin increased [None]
  - Platelet count decreased [None]

NARRATIVE: CASE EVENT DATE: 20200116
